FAERS Safety Report 9548185 (Version 1)
Quarter: 2013Q3

REPORT INFORMATION
  Report Type: Spontaneous
  Country: CA (occurrence: CA)
  Receive Date: 20130924
  Receipt Date: 20130924
  Transmission Date: 20140515
  Serious: Yes (Hospitalization)
  Sender: FDA-Public Use
  Company Number: CA-ROCHE-1279766

PATIENT
  Age: 50 Year
  Sex: Male

DRUGS (3)
  1. PEGASYS [Suspect]
     Indication: PRODUCT USED FOR UNKNOWN INDICATION
     Route: 065
  2. RIBAVIRIN [Interacting]
     Indication: PRODUCT USED FOR UNKNOWN INDICATION
     Route: 065
  3. INCIVEK [Interacting]
     Indication: PRODUCT USED FOR UNKNOWN INDICATION
     Route: 048

REACTIONS (6)
  - Arrhythmia [Unknown]
  - Bronchitis [Unknown]
  - Drug interaction [Unknown]
  - Dyspnoea [Unknown]
  - Hypokalaemia [Unknown]
  - Pneumonia [Unknown]
